FAERS Safety Report 18001585 (Version 1)
Quarter: 2020Q3

REPORT INFORMATION
  Report Type: Spontaneous
  Country: US (occurrence: US)
  Receive Date: 20200709
  Receipt Date: 20200709
  Transmission Date: 20201103
  Serious: Yes (Disabling, Other)
  Sender: FDA-Public Use
  Company Number: US-NAPPMUNDI-USA-2020-0155889

PATIENT
  Age: 80 Year
  Sex: Female

DRUGS (3)
  1. VALIUM [Suspect]
     Active Substance: DIAZEPAM
     Indication: CEREBROVASCULAR ACCIDENT
     Dosage: UNKNOWN
     Route: 065
  2. OXYCONTIN [Suspect]
     Active Substance: OXYCODONE HYDROCHLORIDE
     Indication: PRODUCT USED FOR UNKNOWN INDICATION
     Dosage: UNKNOWN
     Route: 048
  3. DILAUDID [Suspect]
     Active Substance: HYDROMORPHONE HYDROCHLORIDE
     Indication: CEREBROVASCULAR ACCIDENT
     Dosage: UNKNOWN
     Route: 048

REACTIONS (2)
  - Cerebrovascular accident [Unknown]
  - Quadriplegia [Unknown]
